FAERS Safety Report 5168963-7 (Version None)
Quarter: 2006Q4

REPORT INFORMATION
  Report Type: 
  Country: None (occurrence: None)
  Receive Date: 20061211
  Receipt Date: 20061204
  Transmission Date: 20070319
  Serious: Yes (Death, Hospitalization)
  Sender: FDA-Public Use
  Company Number: FR-GLAXOSMITHKLINE-B0449596A

PATIENT
  Age: 48 Year
  Sex: Male
  Weight: 72 kg

DRUGS (10)
  1. ARIXTRA [Suspect]
     Indication: DRUG USE FOR UNKNOWN INDICATION
     Dosage: 7.5MG SINGLE DOSE
     Route: 058
     Dates: start: 20061125, end: 20061125
  2. COAGULATION FACTORS [Concomitant]
     Indication: CEREBELLAR HAEMATOMA
     Dates: start: 20061124, end: 20061124
  3. TRUVADA [Concomitant]
     Indication: HIV INFECTION
  4. VIRAMUNE [Concomitant]
     Indication: HIV INFECTION
  5. TENORMIN [Concomitant]
  6. FENOFIBRATE [Concomitant]
  7. ANTIVITAMINS K [Concomitant]
  8. ASPIRIN [Concomitant]
  9. NON STEROIDAL ANTI-INFLAMMATORY DRUG [Concomitant]
     Dates: start: 20061117
  10. ANTIBIOTIC [Concomitant]
     Dates: start: 20061121

REACTIONS (9)
  - APHASIA [None]
  - BALANCE DISORDER [None]
  - CEREBRAL HAEMORRHAGE [None]
  - COMA [None]
  - CONFUSIONAL STATE [None]
  - FALL [None]
  - HAEMATOMA [None]
  - HEADACHE [None]
  - NEUROLOGICAL SYMPTOM [None]
